FAERS Safety Report 7063713-1 (Version None)
Quarter: 2010Q4

REPORT INFORMATION
  Report Type: 
  Country: None (occurrence: None)
  Receive Date: 20101026
  Receipt Date: 20101020
  Transmission Date: 20110411
  Serious: Yes (Disabling)
  Sender: FDA-Public Use
  Company Number: DE-US-EMD SERONO, INC.-7009236

PATIENT
  Sex: Female
  Weight: 73 kg

DRUGS (3)
  1. REBIF [Suspect]
     Indication: MULTIPLE SCLEROSIS
     Dates: start: 20071108
  2. REBIF [Suspect]
     Route: 058
     Dates: start: 20100111, end: 20100616
  3. CITALOPRAM HYDROBROMIDE [Concomitant]
     Indication: DEPRESSION
     Route: 048
     Dates: start: 20041201

REACTIONS (2)
  - INJECTION SITE ABSCESS [None]
  - INJECTION SITE NODULE [None]
